FAERS Safety Report 9741783 (Version 2)
Quarter: 2014Q1

REPORT INFORMATION
  Report Type: Other
  Country: IT (occurrence: IT)
  Receive Date: 20131210
  Receipt Date: 20140130
  Transmission Date: 20141002
  Serious: Yes (Hospitalization)
  Sender: FDA-Public Use
  Company Number: IT-SUN PHARMACEUTICAL INDUSTRIES LTD-2013SUN05142

PATIENT
  Age: 51 Year
  Sex: Male

DRUGS (2)
  1. VENLAFAXINE HYDROCHLORIDE 37.5 MG TABLET [Suspect]
     Indication: PRODUCT USED FOR UNKNOWN INDICATION
     Dosage: 20 DF, TOTAL
     Route: 048
     Dates: start: 20130930, end: 20130930
  2. ALPRAZOLAM [Suspect]
     Indication: PRODUCT USED FOR UNKNOWN INDICATION
     Dosage: 20 DF, TOTAL
     Route: 048
     Dates: start: 20130930, end: 20130930

REACTIONS (2)
  - Sopor [Recovered/Resolved]
  - Intentional self-injury [Recovered/Resolved]
